FAERS Safety Report 4882355-7 (Version None)
Quarter: 2006Q1

REPORT INFORMATION
  Report Type: 
  Country: None (occurrence: None)
  Receive Date: 20060117
  Receipt Date: 20051220
  Transmission Date: 20060701
  Serious: Yes (Hospitalization)
  Sender: FDA-Public Use
  Company Number: NL-ROCHE-429570

PATIENT
  Age: 71 Year
  Sex: Male

DRUGS (6)
  1. CAPECITABINE [Suspect]
     Dosage: DAYS 1-14 OF 3 WEEK CYCLE.
     Route: 048
     Dates: start: 20051020
  2. BEVACIZUMAB [Suspect]
     Dosage: ON DAY 1 OF 3 WEEK CYCLE. DOSE ALSO REPORTED AS 600MG.
     Route: 042
     Dates: start: 20051020
  3. OXALIPLATIN [Suspect]
     Dosage: ON DAY 1 OF 3 WEEK CYCLE. DOSE ALSO REPORTED AS 250MG.
     Route: 042
     Dates: start: 20051020
  4. TAMBOCOR [Concomitant]
     Dosage: DOSE REPORTED AS 50.
  5. DIGOXIN [Concomitant]
     Dosage: DOSE REPORTED AS 1/8.
  6. PREDNISONE [Concomitant]
     Dosage: DOSE REPORTED AS 5.

REACTIONS (2)
  - METASTASES TO ADRENALS [None]
  - THERAPEUTIC AGENT TOXICITY [None]
